FAERS Safety Report 7761213-4 (Version None)
Quarter: 2011Q3

REPORT INFORMATION
  Report Type: 
  Country: None (occurrence: None)
  Receive Date: 20110920
  Receipt Date: 20110909
  Transmission Date: 20111222
  Serious: Yes (Death, Other)
  Sender: FDA-Public Use
  Company Number: PHHY2011DK81775

PATIENT
  Sex: Male

DRUGS (3)
  1. TODOLAC [Concomitant]
     Dosage: 200 MG, PRN
     Route: 048
  2. PINEX [Concomitant]
     Dosage: 500 MG, PRN
     Route: 048
  3. METHOTREXATE [Suspect]
     Indication: RHEUMATOID ARTHRITIS
     Dosage: 25 / WEEK
     Route: 030
     Dates: start: 20030922, end: 20031029

REACTIONS (3)
  - LUNG INFILTRATION [None]
  - DYSPNOEA [None]
  - ROAD TRAFFIC ACCIDENT [None]
